FAERS Safety Report 4768933-4 (Version None)
Quarter: 2005Q3

REPORT INFORMATION
  Report Type: 
  Country: None (occurrence: None)
  Receive Date: 20050914
  Receipt Date: 20050901
  Transmission Date: 20060218
  Serious: Yes (Other)
  Sender: FDA-Public Use
  Company Number: 27382

PATIENT
  Age: 50 Year
  Sex: Female

DRUGS (1)
  1. ALDARA [Suspect]
     Indication: LEISHMANIASIS
     Dosage: (EVERY OTHER DAY), TOPICAL
     Route: 061

REACTIONS (3)
  - INFLAMMATION [None]
  - PERIORBITAL OEDEMA [None]
  - SECRETION DISCHARGE [None]
